FAERS Safety Report 17128628 (Version 1)
Quarter: 2019Q4

REPORT INFORMATION
  Report Type: Spontaneous
  Country: US (occurrence: US)
  Receive Date: 20191206
  Receipt Date: 20191206
  Transmission Date: 20200122
  Serious: Yes (Disabling)
  Sender: FDA-Public Use
  Company Number: None

PATIENT
  Age: 28 Year
  Sex: Female
  Weight: 72 kg

DRUGS (3)
  1. LEXAPRO [Concomitant]
     Active Substance: ESCITALOPRAM OXALATE
  2. HYDROXINE [Concomitant]
     Active Substance: HYDROXYZINE HYDROCHLORIDE
  3. VOLTAREN [Suspect]
     Active Substance: DICLOFENAC SODIUM
     Indication: ARTHROPATHY
     Dosage: ?          QUANTITY:1 TABLET(S);?
     Route: 048
     Dates: start: 20191121, end: 20191205

REACTIONS (7)
  - Self-injurious ideation [None]
  - Nervousness [None]
  - Irritability [None]
  - Insomnia [None]
  - Anxiety [None]
  - Anger [None]
  - Depression [None]

NARRATIVE: CASE EVENT DATE: 20191201
